FAERS Safety Report 5782947-7 (Version None)
Quarter: 2008Q2

REPORT INFORMATION
  Report Type: 
  Country: None (occurrence: None)
  Receive Date: 20080624
  Receipt Date: 20080613
  Transmission Date: 20081010
  Serious: Yes (Other)
  Sender: FDA-Public Use
  Company Number: JP-BRISTOL-MYERS SQUIBB COMPANY-14237036

PATIENT
  Age: 24 Year
  Sex: Female

DRUGS (3)
  1. IFOMIDE [Suspect]
     Indication: OVARIAN GERM CELL CANCER
     Dosage: THERAPY INITIATED WITH 1.2 MG/M2 (DAY2-6) AND DOSE DECREASED TO 0.8MG/M2(DAY2-6).
     Route: 041
  2. PACLITAXEL [Suspect]
     Indication: OVARIAN GERM CELL CANCER
     Route: 041
  3. CISPLATIN [Suspect]
     Indication: OVARIAN GERM CELL CANCER
     Dosage: ALSO ADMINISTERED AS PEP THERAPY WITH 60MG/M2 FOR A TOTAL OF 3 COURSES.
     Route: 065

REACTIONS (4)
  - ALOPECIA [None]
  - AMENORRHOEA [None]
  - LEUKOPENIA [None]
  - NEURALGIA [None]
